FAERS Safety Report 15670074 (Version 1)
Quarter: 2018Q4

REPORT INFORMATION
  Report Type: Spontaneous
  Country: US (occurrence: US)
  Receive Date: 20181129
  Receipt Date: 20181129
  Transmission Date: 20190205
  Serious: No
  Sender: FDA-Public Use
  Company Number: US-009507513-1811USA003015

PATIENT
  Sex: Male

DRUGS (1)
  1. STEGLATRO [Suspect]
     Active Substance: ERTUGLIFLOZIN PIDOLATE
     Dosage: 15 MILLIGRAM ONCE DAILY
     Route: 048

REACTIONS (4)
  - Wrong technique in product usage process [Unknown]
  - Circumstance or information capable of leading to medication error [Unknown]
  - No adverse event [Unknown]
  - Incorrect dose administered [Unknown]
